FAERS Safety Report 15487777 (Version 2)
Quarter: 2018Q4

REPORT INFORMATION
  Report Type: Spontaneous
  Country: JP (occurrence: JP)
  Receive Date: 20181011
  Receipt Date: 20181011
  Transmission Date: 20190205
  Serious: Yes (Other)
  Sender: FDA-Public Use
  Company Number: JP-TEVA-2018-JP-000888J

PATIENT
  Age: 77 Year
  Sex: Male

DRUGS (1)
  1. FUROSEMIDE TABLET 20MG TEVA [Suspect]
     Active Substance: FUROSEMIDE
     Indication: PRODUCT USED FOR UNKNOWN INDICATION
     Route: 048

REACTIONS (2)
  - Pyoderma [Unknown]
  - Rash pustular [Unknown]
